FAERS Safety Report 6079423-3 (Version None)
Quarter: 2009Q1

REPORT INFORMATION
  Report Type: 
  Country: None (occurrence: None)
  Receive Date: 20090216
  Receipt Date: 20090210
  Transmission Date: 20090719
  Serious: Yes (Hospitalization, Other)
  Sender: FDA-Public Use
  Company Number: JP-ASTRAZENECA-2008AP09162

PATIENT
  Age: 49 Year
  Sex: Female

DRUGS (2)
  1. NOLVADEX [Suspect]
     Indication: BREAST CANCER
     Route: 048
     Dates: start: 20060911, end: 20080609
  2. THYRADIN S [Concomitant]
     Route: 048
     Dates: start: 19880101

REACTIONS (4)
  - ANAEMIA [None]
  - GENITAL HAEMORRHAGE [None]
  - ORGANISING PNEUMONIA [None]
  - UTERINE LEIOMYOMA [None]
